FAERS Safety Report 17955143 (Version 1)
Quarter: 2020Q2

REPORT INFORMATION
  Report Type: Spontaneous
  Country: US (occurrence: US)
  Receive Date: 20200627
  Receipt Date: 20200627
  Transmission Date: 20200714
  Serious: Yes (Life-Threatening)
  Sender: FDA-Public Use
  Company Number: None

PATIENT
  Age: 32 Year
  Sex: Female
  Weight: 72.58 kg

DRUGS (15)
  1. ACETAMINOPHEN 650 MG ORAL LIQUID [Concomitant]
  2. FAMOTIDINE 20 MG INJECTION [Concomitant]
  3. INSULIN ASPART [Concomitant]
     Active Substance: INSULIN ASPART
  4. FENTANYL CONTINUOUS INFUSION [Concomitant]
     Active Substance: FENTANYL
  5. PHYTONADIONE 5 MG TABLET [Concomitant]
  6. PEPTAMEN CONTINUOUS ENTERAL NUTRITION [Concomitant]
  7. CENTRUM MULTIVITAMIN ORAL SOLUTION [Concomitant]
  8. DEXMEDETOMIDINE CONTINUOUS INFUSION [Concomitant]
  9. POLYETHYLENE GLYCOL 17G PACKET [Concomitant]
  10. REMDESIVIR. [Suspect]
     Active Substance: REMDESIVIR
     Indication: COVID-19
     Route: 041
     Dates: start: 20200610, end: 20200612
  11. HYDROCORTISONE 50 MG INJECTION [Concomitant]
  12. SENNA ORAL SOLUTION [Concomitant]
  13. ENOXAPARIN 40 MG INJECTION [Concomitant]
  14. POTASSIUM PHOSPHATE 30 MMOL INJECTION [Concomitant]
  15. CEFEPIME 2G INJECTION [Concomitant]

REACTIONS (5)
  - Transaminases increased [None]
  - Alanine aminotransferase increased [None]
  - Hypotension [None]
  - Aspartate aminotransferase increased [None]
  - Ischaemic hepatitis [None]

NARRATIVE: CASE EVENT DATE: 20200612
